FAERS Safety Report 6928821-1 (Version None)
Quarter: 2010Q3

REPORT INFORMATION
  Report Type: 
  Country: None (occurrence: None)
  Receive Date: 20100817
  Receipt Date: 20100811
  Transmission Date: 20110219
  Serious: Yes (Hospitalization)
  Sender: FDA-Public Use
  Company Number: JP-BRISTOL-MYERS SQUIBB COMPANY-15238769

PATIENT
  Age: 69 Year
  Sex: Male
  Weight: 75 kg

DRUGS (3)
  1. BARACLUDE [Suspect]
     Indication: HEPATITIS B
     Dosage: 17JAN08:12MAR08:0.5MGX1 MG/D 13MAR08:ONG:1MGX1 MG/D
     Route: 048
     Dates: start: 20090117
  2. URSO 250 [Concomitant]
     Dosage: TABS
     Route: 048
     Dates: start: 19950101, end: 20100112
  3. HEPSERA [Concomitant]
     Indication: HEPATITIS B DNA INCREASED
     Dosage: TABS
     Route: 048
     Dates: start: 20090212, end: 20100112

REACTIONS (1)
  - HEPATIC NEOPLASM MALIGNANT [None]
